FAERS Safety Report 24843128 (Version 1)
Quarter: 2025Q1

REPORT INFORMATION
  Report Type: Report from Study
  Country: US (occurrence: US)
  Receive Date: 20250115
  Receipt Date: 20250115
  Transmission Date: 20250409
  Serious: No
  Sender: HRA PHARMA
  Company Number: US-ORG100014127-2024000339

PATIENT
  Age: 79 Year
  Sex: Male

DRUGS (16)
  1. LYSODREN [Suspect]
     Active Substance: MITOTANE
     Indication: Adrenal gland cancer
     Dosage: 4 TABLETS TWICE DAILY (TOTAL OF 4G PER DAY)
     Route: 048
     Dates: start: 20230928
  2. ACETAMINOPHEN TAB 325MG [Concomitant]
     Indication: Product used for unknown indication
  3. ELIQUIS [Concomitant]
     Active Substance: APIXABAN
     Indication: Product used for unknown indication
  4. FUROSEMIDE [Concomitant]
     Active Substance: FUROSEMIDE
     Indication: Product used for unknown indication
  5. HUMALOG [Concomitant]
     Active Substance: INSULIN LISPRO
     Indication: Product used for unknown indication
  6. HYDROCORTISONE TAB 10MG [Concomitant]
     Indication: Product used for unknown indication
  7. LOVENOX INJ 40/0.4ML [Concomitant]
     Indication: Product used for unknown indication
  8. METOPROL TARTRATE TAB 25MG [Concomitant]
     Indication: Product used for unknown indication
  9. MILK OF MAGNISIA SUSPENSION 400/5ML [Concomitant]
     Indication: Product used for unknown indication
  10. MULTIVITAMIN TAB DAILY [Concomitant]
     Indication: Product used for unknown indication
  11. ONDANSETRON [Concomitant]
     Active Substance: ONDANSETRON
     Indication: Product used for unknown indication
  12. OXYBUTYNIN TAB 5MG [Concomitant]
     Indication: Product used for unknown indication
  13. PANTOPRAZOLE TAB 40MG [Concomitant]
     Indication: Product used for unknown indication
  14. POTASSIUM CHLORIDE MICRO TAB 10MEQ CR [Concomitant]
     Indication: Product used for unknown indication
  15. PRAVASTATIN TAB 80MG [Concomitant]
     Indication: Product used for unknown indication
  16. VITAMIN B-1 TAB 100MG [Concomitant]
     Indication: Product used for unknown indication

REACTIONS (4)
  - Blood pressure fluctuation [Not Recovered/Not Resolved]
  - Fatigue [Not Recovered/Not Resolved]
  - Balance disorder [Not Recovered/Not Resolved]
  - Blood cholesterol increased [Not Recovered/Not Resolved]
